FAERS Safety Report 9707345 (Version 1)
Quarter: 2013Q4

REPORT INFORMATION
  Report Type: Spontaneous
  Country: US (occurrence: US)
  Receive Date: 20131125
  Receipt Date: 20131125
  Transmission Date: 20140711
  Serious: No
  Sender: FDA-Public Use
  Company Number: US-GLAXOSMITHKLINE-A1024289A

PATIENT
  Age: 72 Year
  Sex: Female

DRUGS (4)
  1. FLOVENT [Suspect]
     Indication: ASTHMA
     Dosage: 1PUFF TWICE PER DAY
     Route: 055
     Dates: start: 2007
  2. MAXAIR AUTOHALER [Concomitant]
  3. XOPENEX [Concomitant]
  4. LIPITOR [Concomitant]

REACTIONS (1)
  - Drug ineffective [Not Recovered/Not Resolved]
